FAERS Safety Report 5635604-1 (Version None)
Quarter: 2008Q1

REPORT INFORMATION
  Report Type: 
  Country: None (occurrence: None)
  Receive Date: 20080222
  Receipt Date: 20080212
  Transmission Date: 20080703
  Serious: Yes (Hospitalization)
  Sender: FDA-Public Use
  Company Number: TR-ELI_LILLY_AND_COMPANY-TR200802004370

PATIENT
  Age: 74 Year
  Sex: Female
  Weight: 51 kg

DRUGS (5)
  1. HUMULIN 70/30 [Suspect]
     Dosage: 14 IU, EACH MORNING
     Route: 058
     Dates: start: 20030101
  2. HUMULIN 70/30 [Suspect]
     Dosage: 6 IU, EACH EVENING
     Route: 058
     Dates: start: 20030101
  3. BELOC [Concomitant]
     Dosage: ONCE DAILY
     Route: 048
  4. ISOSORBIDE MONONITRATE [Concomitant]
     Dosage: ONCE DAILY
     Route: 048
  5. SINOPRYL [Concomitant]
     Dosage: HALF TABLETS DAILY
     Route: 048
     Dates: start: 20040101

REACTIONS (1)
  - GALLBLADDER DISORDER [None]
